FAERS Safety Report 23375083 (Version 1)
Quarter: 2024Q1

REPORT INFORMATION
  Report Type: Report from Study
  Country: US (occurrence: US)
  Receive Date: 20240106
  Receipt Date: 20240106
  Transmission Date: 20240410
  Serious: Yes (Other)
  Sender: FDA-Public Use
  Company Number: US-AUROBINDO-AUR-APL-2023-076229

PATIENT
  Age: 59 Year
  Sex: Female

DRUGS (3)
  1. CAPECITABINE [Suspect]
     Active Substance: CAPECITABINE
     Indication: Cholangiocarcinoma
     Dosage: 1000 MILLIGRAM/SQ. METER, TWO TIMES A DAY (FOR 14 DAYS IN A 21 DAY CYCLE)
     Route: 048
  2. GEMCITABINE [Suspect]
     Active Substance: GEMCITABINE
     Indication: Cholangiocarcinoma
     Dosage: 1000 MILLIGRAM/SQ. METER (ON DAYS 1 AND 8 OVER A 21 DAY CYCLE FOR 3 CYCLES)
     Route: 042
  3. CISPLATIN [Suspect]
     Active Substance: CISPLATIN
     Indication: Cholangiocarcinoma
     Dosage: 25 MILLIGRAM/SQ. METER (ON DAYS 1 AND 8 OVER A 21 DAY CYCLE FOR 3 CYCLES)
     Route: 042

REACTIONS (5)
  - Thrombocytopenia [Unknown]
  - Ascites [Unknown]
  - Cerebrovascular accident [Unknown]
  - Hypoalbuminaemia [Unknown]
  - Pruritus [Unknown]
